FAERS Safety Report 9964356 (Version 2)
Quarter: 2014Q1

REPORT INFORMATION
  Report Type: Report from Study
  Country: US (occurrence: US)
  Receive Date: 20140305
  Receipt Date: 20140305
  Transmission Date: 20141002
  Serious: Yes (Other)
  Sender: FDA-Public Use
  Company Number: US-PFIZER INC-2011040619

PATIENT
  Age: 61 Year
  Sex: Male

DRUGS (7)
  1. LIPITOR [Suspect]
     Dosage: UNK
  2. VIAGRA [Suspect]
     Dosage: 100 MG, 1 HR PRIOR- AS NEEDED
  3. NEXIUM [Concomitant]
     Dosage: 40 MG, DAILY
  4. ASA [Concomitant]
     Dosage: 81 MG, UNK
  5. LISINOPRIL [Concomitant]
     Dosage: 5 MG, UNK
  6. METOPROLOL TARTRATE [Concomitant]
     Dosage: 25 MG (1/2 OF 50 MG) 2X/DAY
  7. CRESTOR [Concomitant]
     Dosage: 20 MG, AT BEDTIME

REACTIONS (1)
  - Muscle rupture [Unknown]
